FAERS Safety Report 4263196-0 (Version None)
Quarter: 2004Q1

REPORT INFORMATION
  Report Type: 
  Country: None (occurrence: None)
  Receive Date: 20040104
  Receipt Date: 20040104
  Transmission Date: 20041129
  Serious: Yes (Other)
  Sender: FDA-Public Use
  Company Number: None

PATIENT
  Age: 62 Year
  Sex: Female

DRUGS (3)
  1. FLUOXETINE [Suspect]
     Indication: BIPOLAR DISORDER
     Dosage: 40 MG QD MRDC TEVA -00093719856
     Dates: start: 20020802, end: 20021002
  2. FLUOXETINE [Suspect]
     Indication: DEPRESSION
     Dosage: 40 MG QD MRDC TEVA -00093719856
     Dates: start: 20020802, end: 20021002
  3. SYNTHROID [Concomitant]

REACTIONS (3)
  - CONDITION AGGRAVATED [None]
  - DEPRESSION [None]
  - PHARMACEUTICAL PRODUCT COMPLAINT [None]
